FAERS Safety Report 8001356-3 (Version None)
Quarter: 2011Q4

REPORT INFORMATION
  Report Type: 
  Country: None (occurrence: None)
  Receive Date: 20111222
  Receipt Date: 20111217
  Transmission Date: 20120403
  Serious: Yes (Other)
  Sender: FDA-Public Use
  Company Number: CN-PFIZER INC-2011307238

PATIENT
  Age: 32 Year
  Sex: Male

DRUGS (6)
  1. AMPHOTERICIN B [Concomitant]
     Dosage: 40MG
     Route: 041
     Dates: start: 20111210, end: 20111210
  2. AMPHOTERICIN B [Concomitant]
     Dosage: 10MG
     Route: 041
     Dates: start: 20111126, end: 20111126
  3. AMPHOTERICIN B [Concomitant]
     Dosage: 25MG
     Route: 041
     Dates: start: 20111127, end: 20111209
  4. AMPHOTERICIN B [Concomitant]
     Indication: MENINGITIS FUNGAL
     Dosage: 5MG
     Route: 041
     Dates: start: 20111124, end: 20111125
  5. DIFLUCAN [Suspect]
     Indication: MENINGITIS FUNGAL
     Dosage: 400 MG, UNK
     Route: 041
     Dates: start: 20111203, end: 20111215
  6. AMPHOTERICIN B [Concomitant]
     Dosage: 50MG
     Route: 041
     Dates: start: 20111211, end: 20111211

REACTIONS (1)
  - INTRACRANIAL PRESSURE INCREASED [None]
